FAERS Safety Report 8817574 (Version 2)
Quarter: 2012Q4

REPORT INFORMATION
  Report Type: 
  Country: US (occurrence: US)
  Receive Date: 20121001
  Receipt Date: 20121019
  Transmission Date: 20130627
  Serious: Yes (Death)
  Sender: FDA-Public Use
  Company Number: US-B.I. PHARMACEUTICALS,INC./RIDGEFIELD-2012-BP-23614BP

PATIENT
  Age: 75 Year
  Sex: Female

DRUGS (12)
  1. PRADAXA [Suspect]
     Indication: ATRIAL FIBRILLATION
     Dosage: 300 mg
     Route: 048
     Dates: start: 20120516
  2. MAGNESIUM [Concomitant]
  3. GLUCOPHAGE [Concomitant]
  4. ALTEPLASE [Concomitant]
  5. CALCIUM [Concomitant]
  6. VITAMIN D [Concomitant]
  7. ASPIRIN 81MG/DAY [Concomitant]
     Dosage: 81 mg
  8. ZANTAC [Concomitant]
  9. ZOCOR [Concomitant]
  10. ZOLOFT [Concomitant]
  11. IRON [Concomitant]
  12. COLACE [Concomitant]

REACTIONS (3)
  - Urosepsis [Fatal]
  - Urinary tract infection [Fatal]
  - Gastrointestinal haemorrhage [Fatal]
